FAERS Safety Report 9064088 (Version 1)
Quarter: 2013Q1

REPORT INFORMATION
  Report Type: Spontaneous
  Country: US (occurrence: US)
  Receive Date: 20130213
  Receipt Date: 20130213
  Transmission Date: 20140127
  Serious: Yes (Other)
  Sender: FDA-Public Use
  Company Number: US-UCBSA-077938

PATIENT
  Age: 37 Year
  Sex: Female
  Weight: 172.36 kg

DRUGS (4)
  1. CIMZIA [Suspect]
     Indication: RHEUMATOID ARTHRITIS
     Dates: start: 201212, end: 20130119
  2. SYNTHROID [Concomitant]
     Indication: THYROID DISORDER
  3. COUMADIN [Concomitant]
     Indication: THROMBOSIS
  4. COUMADIN [Concomitant]
     Indication: PULMONARY EMBOLISM

REACTIONS (2)
  - Rash erythematous [Recovering/Resolving]
  - Rash pruritic [Recovering/Resolving]
